FAERS Safety Report 7245435-7 (Version None)
Quarter: 2011Q1

REPORT INFORMATION
  Report Type: 
  Country: None (occurrence: None)
  Receive Date: 20110126
  Receipt Date: 20090127
  Transmission Date: 20110831
  Serious: Yes (Hospitalization, Other)
  Sender: FDA-Public Use
  Company Number: DE-JNJFOC-20110105954

PATIENT
  Age: 39 Year
  Sex: Male

DRUGS (8)
  1. BISOPROLOL [Concomitant]
     Indication: ILL-DEFINED DISORDER
  2. SIMVASTATIN [Concomitant]
     Indication: ILL-DEFINED DISORDER
  3. ACETYLSALICYLIC ACID SRT [Concomitant]
     Indication: ILL-DEFINED DISORDER
  4. ABCIXIMAB [Suspect]
     Indication: MYOCARDIAL INFARCTION
     Route: 042
  5. ESOMEPRAZOLE [Concomitant]
     Indication: ILL-DEFINED DISORDER
  6. REOPRO [Suspect]
     Indication: MYOCARDIAL INFARCTION
     Route: 022
  7. CLOPIDOGREL [Concomitant]
     Indication: ILL-DEFINED DISORDER
  8. LOSARTAN POTASSIUM [Concomitant]
     Indication: ILL-DEFINED DISORDER

REACTIONS (1)
  - MYOCARDIAL INFARCTION [None]
